FAERS Safety Report 5984621-0 (Version None)
Quarter: 2008Q4

REPORT INFORMATION
  Report Type: 
  Country: None (occurrence: None)
  Receive Date: 20081208
  Receipt Date: 20080825
  Transmission Date: 20090506
  Serious: No
  Sender: FDA-Public Use
  Company Number: US-AMGEN-KDL303639

PATIENT
  Sex: Female

DRUGS (1)
  1. ENBREL [Suspect]
     Indication: REITER'S SYNDROME
     Route: 058
     Dates: start: 20070405

REACTIONS (5)
  - EOSINOPHIL COUNT INCREASED [None]
  - MEAN CELL VOLUME DECREASED [None]
  - MONOCYTE COUNT INCREASED [None]
  - NEUTROPENIA [None]
  - RED CELL DISTRIBUTION WIDTH INCREASED [None]
